FAERS Safety Report 7214181-8 (Version None)
Quarter: 2010Q4

REPORT INFORMATION
  Report Type: 
  Country: None (occurrence: None)
  Receive Date: 20101126
  Receipt Date: 20100914
  Transmission Date: 20110411
  Serious: No
  Sender: FDA-Public Use
  Company Number: 163-22393-10091517

PATIENT

DRUGS (1)
  1. ISTODAX [Suspect]
     Indication: MYCOSIS FUNGOIDES
     Dosage: 14 MG/M2, ON DAYS 1, 8, 15 Q 28 DAYS, INTRAVENOUS

REACTIONS (4)
  - ASTHENIA [None]
  - GASTROINTESTINAL DISORDER [None]
  - HAEMATOTOXICITY [None]
  - LABORATORY TEST ABNORMAL [None]
